FAERS Safety Report 10263196 (Version 2)
Quarter: 2014Q2

REPORT INFORMATION
  Report Type: Report from Study
  Country: US (occurrence: US)
  Receive Date: 20140626
  Receipt Date: 20140626
  Transmission Date: 20141212
  Serious: Yes (Other)
  Sender: FDA-Public Use
  Company Number: US-MYLANLABS-2014S1006008

PATIENT
  Age: 61 Year
  Sex: Female

DRUGS (8)
  1. CLOZAPINE TABLETS [Suspect]
     Indication: SCHIZOPHRENIA
     Dosage: 1 TABLET TWICE DAILY AND 4 TABLETS AT BEDTIME
     Route: 048
     Dates: end: 2014
  2. CITALOPRAM [Concomitant]
  3. BENZATROPINE [Concomitant]
  4. LORAZEPAM [Concomitant]
     Dosage: DAILY PRN
  5. ADRIAMYCIN [Concomitant]
  6. CYTOXAN [Concomitant]
  7. RITUXAN [Concomitant]
  8. VINCRISTINE [Concomitant]

REACTIONS (2)
  - Granulocytopenia [Recovered/Resolved]
  - Leukopenia [Recovered/Resolved]
